FAERS Safety Report 9202055 (Version 1)
Quarter: 2013Q1

REPORT INFORMATION
  Report Type: Spontaneous
  Country: US (occurrence: None)
  Receive Date: 20130328
  Receipt Date: 20130328
  Transmission Date: 20140127
  Serious: Yes (Other)
  Sender: FDA-Public Use
  Company Number: 9039997-2013-00033

PATIENT
  Age: 73 Year
  Sex: Male

DRUGS (9)
  1. LEVULAN [Suspect]
     Indication: ACTINIC KERATOSIS
     Dosage: 20% SINGLE TOPICAL
     Dates: start: 20130306
  2. METFORMIN [Concomitant]
  3. AMOLDIPINE [Concomitant]
  4. COREG [Concomitant]
  5. LOSARTIN [Concomitant]
  6. PREVACID [Concomitant]
  7. COQ10 [Concomitant]
  8. FISH OIL [Concomitant]
  9. VITB12 [Concomitant]

REACTIONS (6)
  - Dizziness [None]
  - Malaise [None]
  - Heart rate irregular [None]
  - Lethargy [None]
  - Dizziness postural [None]
  - Orthostatic hypotension [None]
